FAERS Safety Report 8797777 (Version 1)
Quarter: 2012Q4

REPORT INFORMATION
  Report Type: Report from Study
  Country: DE (occurrence: DE)
  Receive Date: 20120919
  Receipt Date: 20120919
  Transmission Date: 20130627
  Serious: Yes (Other)
  Sender: FDA-Public Use
  Company Number: DE-ROCHE-1090527

PATIENT
  Age: 52 Year
  Sex: Male

DRUGS (1)
  1. ROFERON-A [Suspect]
     Indication: RENAL CELL CARCINOMA
     Dosage: 9 MIo
     Route: 065

REACTIONS (4)
  - Tachycardia [Recovered/Resolved]
  - Visual impairment [Recovered/Resolved]
  - Fatigue [Not Recovered/Not Resolved]
  - Speech disorder [Recovered/Resolved]
